FAERS Safety Report 23191624 (Version 2)
Quarter: 2024Q1

REPORT INFORMATION
  Report Type: Report from Study
  Country: CA (occurrence: CA)
  Receive Date: 20231116
  Receipt Date: 20240101
  Transmission Date: 20240409
  Serious: Yes (Death, Other)
  Sender: FDA-Public Use
  Company Number: CA-JNJFOC-20231128020

PATIENT
  Age: 77 Year
  Sex: Male

DRUGS (1)
  1. SIMPONI [Interacting]
     Active Substance: GOLIMUMAB
     Indication: Crohn^s disease
     Route: 058
     Dates: start: 20210205, end: 20231207

REACTIONS (4)
  - Death [Fatal]
  - Chemotherapy [Unknown]
  - Radiotherapy [Unknown]
  - Drug interaction [Unknown]
